FAERS Safety Report 14499104 (Version 1)
Quarter: 2018Q1

REPORT INFORMATION
  Report Type: Spontaneous
  Country: US (occurrence: US)
  Receive Date: 20180206
  Receipt Date: 20180206
  Transmission Date: 20180509
  Serious: No
  Sender: FDA-Public Use
  Company Number: None

PATIENT
  Age: 35 Year
  Sex: Female
  Weight: 94.48 kg

DRUGS (3)
  1. OVCON [Suspect]
     Active Substance: ETHINYL ESTRADIOL\NORETHINDRONE
     Indication: VAGINAL HAEMORRHAGE
     Route: 048
     Dates: start: 201006
  2. GENERIC OVCON [Suspect]
     Active Substance: ETHINYL ESTRADIOL\NORETHINDRONE
  3. OVCON [Suspect]
     Active Substance: ETHINYL ESTRADIOL\NORETHINDRONE
     Indication: MIGRAINE
     Route: 048
     Dates: start: 201006

REACTIONS (2)
  - Drug ineffective [None]
  - Product substitution issue [None]
